FAERS Safety Report 8610592-4 (Version None)
Quarter: 2012Q3

REPORT INFORMATION
  Report Type: 
  Country: None (occurrence: None)
  Receive Date: 20120822
  Receipt Date: 20120815
  Transmission Date: 20120928
  Serious: Yes (Hospitalization, Other)
  Sender: FDA-Public Use
  Company Number: ES-US-EMD SERONO, INC.-7154885

PATIENT
  Age: 37 Year
  Sex: Female

DRUGS (1)
  1. INTERFERON BETA-1A [Suspect]
     Indication: MULTIPLE SCLEROSIS

REACTIONS (2)
  - THROMBOTIC MICROANGIOPATHY [None]
  - CHORIORETINITIS [None]
